FAERS Safety Report 9238597 (Version 5)
Quarter: 2013Q2

REPORT INFORMATION
  Report Type: Spontaneous
  Country: FR (occurrence: FR)
  Receive Date: 20130418
  Receipt Date: 20130508
  Transmission Date: 20140414
  Serious: Yes (Hospitalization, Other)
  Sender: FDA-Public Use
  Company Number: FR-PFIZER INC-2013119222

PATIENT
  Age: 92 Year
  Sex: Female

DRUGS (13)
  1. CORDARONE [Suspect]
     Indication: ATRIAL FIBRILLATION
     Dosage: 200 MG, 2X/DAY
     Route: 048
     Dates: start: 20130111
  2. PERINDOPRIL [Interacting]
     Indication: HYPERTENSION
     Dosage: 1 MG, DAILY
     Route: 048
     Dates: start: 201301
  3. PREVISCAN [Suspect]
     Indication: ATRIAL FIBRILLATION
     Dosage: STRENGTH 20 MG TABLET AT 0.5 UNIT DAILY
     Route: 048
     Dates: start: 20130111
  4. ROCEPHINE [Suspect]
     Indication: BRONCHITIS
     Dosage: UNK
     Route: 042
     Dates: start: 20130111, end: 20130119
  5. AUGMENTIN [Interacting]
     Indication: BRONCHITIS
     Dosage: UNK
     Route: 048
     Dates: start: 20130111, end: 20130119
  6. IMOVANE [Concomitant]
     Dosage: HALF TABLET/D
     Dates: start: 20130111
  7. ATROVENT [Concomitant]
     Dosage: 0.5 MG, 6 TIMES DAILY
     Dates: start: 20130111
  8. TEMESTA [Concomitant]
     Dosage: UNK
     Dates: start: 20130111
  9. LEVOTHYROX [Concomitant]
     Dosage: 50 UG, DAILY
     Dates: start: 20130111
  10. ATENOLOL [Concomitant]
     Dosage: UNK
     Dates: start: 20130111
  11. DAFALGAN [Concomitant]
     Dosage: UNK
  12. SERESTA [Concomitant]
     Dosage: UNK
  13. COVERSYL [Concomitant]
     Indication: HYPERTENSION
     Dosage: UNK
     Dates: end: 201301

REACTIONS (7)
  - Drug interaction [Unknown]
  - Renal failure [Recovered/Resolved]
  - Hyperkalaemia [Recovered/Resolved]
  - Diarrhoea [Unknown]
  - Hepatocellular injury [Unknown]
  - Hyperglycaemia [Unknown]
  - International normalised ratio increased [Unknown]
